FAERS Safety Report 4958343-9 (Version None)
Quarter: 2006Q1

REPORT INFORMATION
  Report Type: 
  Country: None (occurrence: None)
  Receive Date: 20060201
  Receipt Date: 20051104
  Transmission Date: 20060701
  Serious: No
  Sender: FDA-Public Use
  Company Number: 2005PV004663

PATIENT
  Age: 49 Year
  Sex: Female
  Weight: 118.3888 kg

DRUGS (6)
  1. BYETTA [Suspect]
     Indication: DIABETES MELLITUS NON-INSULIN-DEPENDENT
     Dosage: 10 MCG;BID;SC
     Route: 058
     Dates: start: 20051017
  2. AVANDIA [Concomitant]
  3. GLUCOPHAGE [Concomitant]
  4. ENALAPRIL MALEATE [Concomitant]
  5. ZOLOFT [Concomitant]
  6. NAPROXEN [Concomitant]

REACTIONS (4)
  - BLOOD GLUCOSE DECREASED [None]
  - BLOOD GLUCOSE INCREASED [None]
  - DECREASED APPETITE [None]
  - FEELING JITTERY [None]
